FAERS Safety Report 4506527-6 (Version None)
Quarter: 2004Q4

REPORT INFORMATION
  Report Type: 
  Country: None (occurrence: None)
  Receive Date: 20041122
  Receipt Date: 20041115
  Transmission Date: 20050328
  Serious: Yes (Hospitalization)
  Sender: FDA-Public Use
  Company Number: US-JNJFOC-20041103758

PATIENT
  Age: 38 Year
  Sex: Male

DRUGS (7)
  1. DURAGESIC [Suspect]
     Route: 062
     Dates: start: 20040101
  2. BACLOFEN [Concomitant]
     Indication: MUSCLE SPASMS
     Route: 049
  3. ZANAFLEX [Concomitant]
     Indication: MUSCLE SPASMS
     Route: 049
  4. OXYCONTIN [Concomitant]
     Indication: PAIN
     Route: 049
  5. NEURONTIN [Concomitant]
     Indication: PAIN
     Route: 049
  6. XANAX [Concomitant]
     Indication: ANXIETY
     Route: 049
  7. VALIUM [Concomitant]
     Indication: DEPRESSION
     Route: 049

REACTIONS (2)
  - DECUBITUS ULCER [None]
  - DRY MOUTH [None]
